FAERS Safety Report 4737904-6 (Version None)
Quarter: 2005Q3

REPORT INFORMATION
  Report Type: 
  Country: None (occurrence: None)
  Receive Date: 20050809
  Receipt Date: 20050728
  Transmission Date: 20060218
  Serious: Yes (Disabling, Other)
  Sender: FDA-Public Use
  Company Number: US-JNJFOC-20050702180

PATIENT
  Sex: Female
  Weight: 47.8 kg

DRUGS (5)
  1. REMICADE [Suspect]
     Indication: CROHN'S DISEASE
  2. ASCOL [Concomitant]
  3. IMURAN [Concomitant]
  4. FOLIC ACID [Concomitant]
  5. ANTIDEPRESSANTS [Concomitant]

REACTIONS (7)
  - BRAIN DAMAGE [None]
  - BRUXISM [None]
  - COGNITIVE DISORDER [None]
  - DEMYELINATION [None]
  - NERVE INJURY [None]
  - PARAESTHESIA [None]
  - SPEECH DISORDER [None]
